FAERS Safety Report 7251441-9 (Version None)
Quarter: 2011Q1

REPORT INFORMATION
  Report Type: 
  Country: None (occurrence: None)
  Receive Date: 20110128
  Receipt Date: 20110114
  Transmission Date: 20110831
  Serious: Yes (Other)
  Sender: FDA-Public Use
  Company Number: DE-AMGEN-DEUSP2011003509

PATIENT
  Age: 47 Year
  Sex: Male

DRUGS (1)
  1. CINACALCET HYDROCHLORIDE [Suspect]

REACTIONS (7)
  - TRANSPLANT REJECTION [None]
  - NASOPHARYNGITIS [None]
  - MYALGIA [None]
  - NEPHROCALCINOSIS [None]
  - HYPOCALCIURIA [None]
  - HYPERPARATHYROIDISM [None]
  - HYPERCALCAEMIA [None]
